FAERS Safety Report 15106554 (Version 3)
Quarter: 2018Q3

REPORT INFORMATION
  Report Type: Spontaneous
  Country: US (occurrence: US)
  Receive Date: 20180704
  Receipt Date: 20180724
  Transmission Date: 20181010
  Serious: No
  Sender: FDA-Public Use
  Company Number: US-SA-2018SA167199

PATIENT
  Age: 41 Year
  Sex: Female

DRUGS (1)
  1. APIDRA SOLOSTAR [Suspect]
     Active Substance: INSULIN GLULISINE
     Indication: TYPE 1 DIABETES MELLITUS
     Dosage: 11 U, QD,WITH MEALS

REACTIONS (2)
  - Drug ineffective [Unknown]
  - Blood glucose increased [Not Recovered/Not Resolved]
